FAERS Safety Report 9386636 (Version 1)
Quarter: 2013Q3

REPORT INFORMATION
  Report Type: Report from Study
  Country: BR (occurrence: BR)
  Receive Date: 20130708
  Receipt Date: 20130708
  Transmission Date: 20140515
  Serious: Yes (Hospitalization, Other)
  Sender: FDA-Public Use
  Company Number: PHHY2013BR057441

PATIENT
  Sex: Male
  Weight: 84 kg

DRUGS (5)
  1. FORASEQ [Suspect]
     Indication: BRONCHITIS CHRONIC
     Dosage: 2 DF, DAILY
  2. FORASEQ [Suspect]
     Dosage: 2 DF, DAILY
  3. CARBIDOPA LEVODOPA [Concomitant]
     Indication: PARKINSON^S DISEASE
     Dosage: 1 DF, DAILY
     Route: 048
  4. ACETILCISTEINA [Concomitant]
     Dosage: 3 DF, DAILY
     Route: 048
  5. LOSARTAN [Concomitant]
     Indication: HYPERTENSION
     Dosage: 2 DF, DAILY
     Route: 048

REACTIONS (2)
  - Bronchitis [Recovered/Resolved]
  - Blindness unilateral [Not Recovered/Not Resolved]
